FAERS Safety Report 9739569 (Version 2)
Quarter: 2013Q4

REPORT INFORMATION
  Report Type: Spontaneous
  Country: US (occurrence: US)
  Receive Date: 20131209
  Receipt Date: 20131217
  Transmission Date: 20140711
  Serious: Yes (Death, Hospitalization)
  Sender: FDA-Public Use
  Company Number: US-B.I. PHARMACEUTICALS,INC./RIDGEFIELD-2013-BI-40870BP

PATIENT
  Age: 81 Year
  Sex: Female

DRUGS (3)
  1. MICARDIS [Suspect]
     Dosage: 40 MG
     Route: 048
  2. SPIRIVA [Suspect]
     Indication: CHRONIC OBSTRUCTIVE PULMONARY DISEASE
     Dosage: 18 MCG
     Route: 055
  3. 32 DIFFERENT PILLS [Concomitant]

REACTIONS (2)
  - Death [Fatal]
  - Cerebrovascular accident [Recovered/Resolved]
